FAERS Safety Report 22136567 (Version 1)
Quarter: 2023Q1

REPORT INFORMATION
  Report Type: Report from Study
  Country: US (occurrence: US)
  Receive Date: 20230324
  Receipt Date: 20230324
  Transmission Date: 20230418
  Serious: Yes (Hospitalization, Other)
  Sender: FDA-Public Use
  Company Number: US-GILEAD-2023-0621360

PATIENT
  Age: 37 Year
  Sex: Female

DRUGS (15)
  1. AZTREONAM LYSINE [Suspect]
     Active Substance: AZTREONAM LYSINE
     Indication: Cystic fibrosis
     Dosage: INHALE 75MG THREE TIMES DAILY VIA NEBULIZER FOR ONE MONTH ON
     Route: 055
     Dates: start: 20220201
  2. TRIKAFTA [Concomitant]
     Active Substance: ELEXACAFTOR\IVACAFTOR\TEZACAFTOR
  3. PULMOZYME [Concomitant]
     Active Substance: DORNASE ALFA
  4. LISINOPRIL [Concomitant]
     Active Substance: LISINOPRIL
  5. HYDROCODONE [Concomitant]
     Active Substance: HYDROCODONE
  6. SODIUM CHLORIDE [Concomitant]
     Active Substance: SODIUM CHLORIDE
  7. METHOCARBAMOL [Concomitant]
     Active Substance: METHOCARBAMOL
  8. GLUCAGON [Concomitant]
     Active Substance: GLUCAGON
  9. INSULIN NOS [Concomitant]
     Active Substance: INSULIN NOS
  10. ONDANSETRON [Concomitant]
     Active Substance: ONDANSETRON
  11. METHYLERGOMETRINE [Concomitant]
     Active Substance: METHYLERGONOVINE MALEATE
  12. OMEPRAZOLE [Concomitant]
     Active Substance: OMEPRAZOLE
  13. SYMBICORT [Concomitant]
     Active Substance: BUDESONIDE\FORMOTEROL FUMARATE DIHYDRATE
  14. MONTELUKAST [Concomitant]
     Active Substance: MONTELUKAST SODIUM
  15. AMLODIPINE [Concomitant]
     Active Substance: AMLODIPINE BESYLATE

REACTIONS (2)
  - Pneumonia [Recovered/Resolved]
  - Pneumothorax [Recovered/Resolved]

NARRATIVE: CASE EVENT DATE: 20230309
